FAERS Safety Report 4365799-1 (Version None)
Quarter: 2004Q2

REPORT INFORMATION
  Report Type: 
  Country: None (occurrence: None)
  Receive Date: 20040521
  Receipt Date: 20040510
  Transmission Date: 20050107
  Serious: Yes (Hospitalization, Disabling)
  Sender: FDA-Public Use
  Company Number: 2004213113SE

PATIENT
  Age: 41 Year
  Sex: Female

DRUGS (4)
  1. ADRIAMYCIN PFS [Suspect]
     Indication: BREAST CANCER
     Dosage: 100 MG, CYCLIC, IV
     Route: 042
     Dates: start: 20010301
  2. ADRIAMYCIN PFS [Suspect]
     Indication: BREAST CANCER
     Dosage: 100 MG, CYCLIC, IV
     Route: 042
     Dates: start: 20010731
  3. SENDOXAN [Concomitant]
  4. ZOFRAN [Concomitant]

REACTIONS (9)
  - ASTIGMATISM [None]
  - CATARACT [None]
  - DEPRESSION [None]
  - DIZZINESS [None]
  - EYE DISORDER [None]
  - FALL [None]
  - FATIGUE [None]
  - HEADACHE [None]
  - NAUSEA [None]
